FAERS Safety Report 9540455 (Version 1)
Quarter: 2013Q3

REPORT INFORMATION
  Report Type: Spontaneous
  Country: US (occurrence: US)
  Receive Date: 20130920
  Receipt Date: 20130920
  Transmission Date: 20140515
  Serious: Yes (Hospitalization)
  Sender: FDA-Public Use
  Company Number: US-ELI_LILLY_AND_COMPANY-US201309005120

PATIENT
  Age: 65 Year
  Sex: Female

DRUGS (3)
  1. HUMALOG LISPRO [Suspect]
  2. VICTOZA [Suspect]
  3. LEVEMIR [Suspect]

REACTIONS (11)
  - Blood glucose increased [Unknown]
  - Nausea [Unknown]
  - Retching [Unknown]
  - Vomiting [Unknown]
  - Dizziness [Unknown]
  - Balance disorder [Unknown]
  - Aphagia [Unknown]
  - Fluid intake reduced [Unknown]
  - Weight decreased [Unknown]
  - Dehydration [Unknown]
  - Blood glucose decreased [Unknown]
